FAERS Safety Report 17121298 (Version 1)
Quarter: 2019Q4

REPORT INFORMATION
  Report Type: Spontaneous
  Country: US (occurrence: US)
  Receive Date: 20191205
  Receipt Date: 20191205
  Transmission Date: 20200122
  Serious: Yes (Hospitalization)
  Sender: FDA-Public Use
  Company Number: None

PATIENT
  Age: 39 Year
  Sex: Female

DRUGS (13)
  1. PROAIR HFA AER [Concomitant]
  2. HYDROMORPHON [Concomitant]
     Active Substance: HYDROMORPHONE
  3. HYDROCO/APAP [Concomitant]
     Active Substance: ACETAMINOPHEN\HYDROCODONE
  4. METHYLPRED [Concomitant]
     Active Substance: METHYLPREDNISOLONE
  5. HUMIRA [Suspect]
     Active Substance: ADALIMUMAB
     Indication: COLITIS ULCERATIVE
     Dosage: ?          OTHER FREQUENCY:EVERY OTHER WEEK;?
     Route: 058
     Dates: start: 20160217
  6. BENZONATATE. [Concomitant]
     Active Substance: BENZONATATE
  7. CLONAZEPAM. [Concomitant]
     Active Substance: CLONAZEPAM
  8. DOXYCYCL HYC [Concomitant]
  9. CLINDAMYCIN. [Concomitant]
     Active Substance: CLINDAMYCIN
  10. DEXTROAMPHET SACCHARAT, AMPHET ASPARTATE, DEXTROAMPHET SULFATE AND AMPHET SULFAT [Concomitant]
     Active Substance: AMPHETAMINE ASPARTATE\AMPHETAMINE SULFATE\DEXTROAMPHETAMINE SACCHARATE\DEXTROAMPHETAMINE SULFATE
  11. BUPROPION. [Concomitant]
     Active Substance: BUPROPION
  12. AZITHROMYCIN ANHYDROUS. [Concomitant]
     Active Substance: AZITHROMYCIN ANHYDROUS
  13. QUETIAPINE. [Concomitant]
     Active Substance: QUETIAPINE

REACTIONS (3)
  - Bronchitis [None]
  - Ankle fracture [None]
  - Product dose omission [None]
